FAERS Safety Report 7552780-4 (Version None)
Quarter: 2011Q2

REPORT INFORMATION
  Report Type: 
  Country: None (occurrence: None)
  Receive Date: 20110616
  Receipt Date: 20110614
  Transmission Date: 20111010
  Serious: Yes (Life-Threatening, Hospitalization, Disabling)
  Sender: FDA-Public Use
  Company Number: US-PFIZER INC-2005051115

PATIENT
  Sex: Male
  Weight: 65.5 kg

DRUGS (2)
  1. SUNITINIB MALATE [Suspect]
     Indication: NEUROENDOCRINE CARCINOMA
     Dosage: 50 MG, 4/2 SCHEDULE
     Route: 048
     Dates: start: 20041213, end: 20050322
  2. HYDROMORPHONE HCL [Concomitant]
     Route: 048
     Dates: start: 20030106

REACTIONS (4)
  - NECK PAIN [None]
  - HEADACHE [None]
  - PRESYNCOPE [None]
  - SEPSIS [None]
